FAERS Safety Report 25974535 (Version 1)
Quarter: 2025Q4

REPORT INFORMATION
  Report Type: Report from Study
  Country: US (occurrence: US)
  Receive Date: 20251029
  Receipt Date: 20251029
  Transmission Date: 20260118
  Serious: No
  Sender: AVERITAS
  Company Number: US-GRUNENTHAL-2025-124310

PATIENT
  Age: 66 Year
  Sex: Female

DRUGS (4)
  1. QUTENZA [Suspect]
     Active Substance: CAPSAICIN
     Indication: Diabetic neuropathy
     Dosage: UNK, ONCE
     Route: 061
     Dates: start: 20251024, end: 20251024
  2. MAGNESIUM [Concomitant]
     Active Substance: MAGNESIUM
     Indication: Diabetic neuropathy
     Dosage: UNK
     Route: 065
  3. CYANOCOBALAMIN [Concomitant]
     Active Substance: CYANOCOBALAMIN
     Indication: Diabetic neuropathy
     Dosage: UNK
     Route: 065
  4. UNSPECIFIED INGREDIENT [Concomitant]
     Active Substance: UNSPECIFIED INGREDIENT
     Indication: Diabetic neuropathy
     Dosage: UNK
     Route: 065

REACTIONS (6)
  - Paraesthesia [Recovered/Resolved]
  - Burning sensation [Unknown]
  - Pruritus [Unknown]
  - Feeling hot [Recovered/Resolved]
  - Limb discomfort [Unknown]
  - Dry skin [Unknown]

NARRATIVE: CASE EVENT DATE: 20251001
